FAERS Safety Report 6859757-2 (Version None)
Quarter: 2010Q3

REPORT INFORMATION
  Report Type: 
  Country: None (occurrence: None)
  Receive Date: 20100716
  Receipt Date: 20100709
  Transmission Date: 20110219
  Serious: Yes (Other)
  Sender: FDA-Public Use
  Company Number: 20108045

PATIENT
  Sex: Male

DRUGS (1)
  1. LIORESAL [Suspect]
     Indication: MUSCLE SPASTICITY
     Dosage: MCG, DAILY, INTRATHECAL
     Route: 037

REACTIONS (6)
  - DEPRESSION [None]
  - FATIGUE [None]
  - IMPLANT SITE EFFUSION [None]
  - IMPLANT SITE SWELLING [None]
  - LETHARGY [None]
  - WEIGHT DECREASED [None]
